FAERS Safety Report 7788532-X (Version None)
Quarter: 2011Q3

REPORT INFORMATION
  Report Type: 
  Country: None (occurrence: None)
  Receive Date: 20110922
  Receipt Date: 20110920
  Transmission Date: 20111222
  Serious: Yes (Other)
  Sender: FDA-Public Use
  Company Number: 2011028314

PATIENT
  Age: 50 Year
  Sex: Female
  Weight: 106.5953 kg

DRUGS (44)
  1. RELPAX [Concomitant]
  2. MAXALT MLT (RIZATRIPTAN BENZOATE) [Concomitant]
  3. PROVIGIL [Concomitant]
  4. BACLOFEN [Concomitant]
  5. MUCINEX [Concomitant]
  6. PULMICORT [Concomitant]
  7. VICODIN [Concomitant]
  8. ALAVERT [Concomitant]
  9. COMBIVENT [Concomitant]
  10. BL RANITIDINE (RANITIDINE) [Concomitant]
  11. PREDNISONE [Concomitant]
  12. VITAMIN D [Concomitant]
  13. ZOFRAN [Concomitant]
  14. AZATHIOPRINE [Concomitant]
  15. TESSALON [Concomitant]
  16. LORATADINE [Concomitant]
  17. HYDROXYZINE [Concomitant]
  18. COUMADIN [Concomitant]
  19. HIZENTRA [Suspect]
  20. NEOSTIGMINE (NEOSTIGMINE) [Concomitant]
  21. KLONOPIN [Concomitant]
  22. CELEBREX [Concomitant]
  23. SEROQUEL [Concomitant]
  24. EVOXAC [Concomitant]
  25. HIZENTRA [Suspect]
     Indication: IMMUNODEFICIENCY COMMON VARIABLE
     Dosage: SEE IMAGE
     Route: 058
     Dates: start: 20101009
  26. HIZENTRA [Suspect]
     Indication: IMMUNODEFICIENCY COMMON VARIABLE
     Dosage: SEE IMAGE
     Route: 058
     Dates: start: 20110817
  27. HIZENTRA [Suspect]
     Indication: IMMUNODEFICIENCY COMMON VARIABLE
     Dosage: SEE IMAGE
     Route: 058
     Dates: start: 20110817
  28. HIZENTRA [Suspect]
  29. RESTASIS [Concomitant]
  30. PREVACID [Concomitant]
  31. TRAMADOL HCL [Concomitant]
  32. NORCO [Concomitant]
  33. HIZENTRA [Suspect]
  34. KEPPRA [Concomitant]
  35. PULMICORT [Concomitant]
  36. INNOPRAN XL [Concomitant]
  37. LIDODERM [Concomitant]
  38. ZOLPIDEM [Concomitant]
  39. PLAQUENIL [Concomitant]
  40. BALANCE B (BIO-ORGANICS BALANCED B) [Concomitant]
  41. BL MAGNESIUM (MAGNESIUM) [Concomitant]
  42. DUONEB [Concomitant]
  43. TRIAMTERENE HCTZ (DYAZIDE) [Concomitant]
  44. METFORMIN HCL [Concomitant]

REACTIONS (1)
  - BRONCHITIS [None]
